FAERS Safety Report 23273881 (Version 1)
Quarter: 2023Q4

REPORT INFORMATION
  Report Type: Spontaneous
  Country: US (occurrence: US)
  Receive Date: 20231207
  Receipt Date: 20231207
  Transmission Date: 20240110
  Serious: Yes (Life-Threatening, Hospitalization, Other)
  Sender: FDA-Public Use
  Company Number: US-MACLEODS PHARMACEUTICALS US LTD-MAC2023044616

PATIENT

DRUGS (1)
  1. METFORMIN [Suspect]
     Active Substance: METFORMIN HYDROCHLORIDE
     Indication: Type 2 diabetes mellitus
     Dosage: UNK
     Route: 065

REACTIONS (6)
  - Acute kidney injury [Recovering/Resolving]
  - Respiratory failure [Unknown]
  - Multiple organ dysfunction syndrome [Recovering/Resolving]
  - Septic shock [Unknown]
  - Hypovolaemic shock [Unknown]
  - Lactic acidosis [Recovering/Resolving]
